FAERS Safety Report 13743314 (Version 1)
Quarter: 2017Q3

REPORT INFORMATION
  Report Type: Spontaneous
  Country: US (occurrence: US)
  Receive Date: 20170711
  Receipt Date: 20170711
  Transmission Date: 20171127
  Serious: No
  Sender: FDA-Public Use
  Company Number: US-MORTON GROVE PHARMACEUTICALS, INC.-2023222

PATIENT
  Age: 56 Year
  Sex: Female

DRUGS (1)
  1. SELENIUM SULFIDE. [Suspect]
     Active Substance: SELENIUM SULFIDE

REACTIONS (2)
  - Eye irritation [Unknown]
  - Skin irritation [Unknown]
